FAERS Safety Report 14895999 (Version 1)
Quarter: 2018Q2

REPORT INFORMATION
  Report Type: Report from Study
  Country: None (occurrence: JP)
  Receive Date: 20180515
  Receipt Date: 20180515
  Transmission Date: 20180711
  Serious: Yes (Other)
  Sender: FDA-Public Use
  Company Number: JP-ABBVIE-18S-087-2283928-00

PATIENT
  Age: 53 Year
  Sex: Female
  Weight: 51 kg

DRUGS (4)
  1. VIEKIRAX [Suspect]
     Active Substance: OMBITASVIR\PARITAPREVIR\RITONAVIR
     Indication: CHRONIC HEPATITIS C
     Route: 048
     Dates: start: 20170512, end: 20170831
  2. REBETOL [Suspect]
     Active Substance: RIBAVIRIN
     Indication: CHRONIC HEPATITIS C
     Route: 048
     Dates: start: 20170512, end: 20170517
  3. REBETOL [Suspect]
     Active Substance: RIBAVIRIN
     Route: 048
     Dates: start: 20170609, end: 20170831
  4. REBETOL [Suspect]
     Active Substance: RIBAVIRIN
     Route: 048
     Dates: start: 20170518, end: 20170608

REACTIONS (3)
  - Jaundice [Recovered/Resolved]
  - Pruritus [Recovered/Resolved]
  - Drug-induced liver injury [Recovered/Resolved]

NARRATIVE: CASE EVENT DATE: 20170518
